FAERS Safety Report 4357563-4 (Version None)
Quarter: 2004Q2

REPORT INFORMATION
  Report Type: 
  Country: None (occurrence: None)
  Receive Date: 20040510
  Receipt Date: 20040428
  Transmission Date: 20050107
  Serious: Yes (Hospitalization)
  Sender: FDA-Public Use
  Company Number: JP-JNJFOC-20040305719

PATIENT
  Age: 51 Year
  Sex: Male
  Weight: 65 kg

DRUGS (6)
  1. REMICADE [Suspect]
     Indication: RHEUMATOID ARTHRITIS
     Dosage: 3 MG/KG, INTRAVENOUS
     Route: 042
     Dates: start: 20040212, end: 20040212
  2. PREDNISOLONE [Suspect]
     Indication: ARTHRALGIA
     Dosage: 5 MG,  IN 1 DAY, ORAL
     Route: 048
  3. VOLTAREN [Concomitant]
  4. RIMATIL (BUCILLAMINE) [Concomitant]
  5. SELBEX (TEPRENONE) [Concomitant]
  6. RHEUMATREX [Concomitant]

REACTIONS (3)
  - DISEASE PROGRESSION [None]
  - DRUG INTERACTION [None]
  - HIP FRACTURE [None]
